FAERS Safety Report 22076886 (Version 1)
Quarter: 2023Q1

REPORT INFORMATION
  Report Type: Spontaneous
  Country: DE (occurrence: DE)
  Receive Date: 20230309
  Receipt Date: 20230309
  Transmission Date: 20230418
  Serious: Yes (Other)
  Sender: FDA-Public Use
  Company Number: DE-ABBVIE-4332993

PATIENT
  Age: 37 Year
  Sex: Female

DRUGS (2)
  1. ADALIMUMAB [Suspect]
     Active Substance: ADALIMUMAB
     Indication: Crohn^s disease
     Route: 058
     Dates: end: 202201
  2. Zessly (Infliximab) [Concomitant]
     Indication: Product used for unknown indication
     Dates: end: 2022

REACTIONS (4)
  - Cystitis interstitial [Unknown]
  - Rectal cancer [Unknown]
  - Anal stenosis [Unknown]
  - Duodenal stenosis [Unknown]

NARRATIVE: CASE EVENT DATE: 20220401
